FAERS Safety Report 16614415 (Version 1)
Quarter: 2019Q3

REPORT INFORMATION
  Report Type: Spontaneous
  Country: US (occurrence: US)
  Receive Date: 20190723
  Receipt Date: 20190723
  Transmission Date: 20191004
  Serious: Yes (Other)
  Sender: FDA-Public Use
  Company Number: US-SUNOVION-2019SUN003016

PATIENT
  Age: 92 Year
  Sex: Female

DRUGS (1)
  1. LONHALA MAGNAIR [Suspect]
     Active Substance: GLYCOPYRROLATE
     Dosage: UNK
     Route: 055

REACTIONS (5)
  - Taste disorder [Unknown]
  - Mass [Unknown]
  - Cough [Unknown]
  - Glaucoma [Unknown]
  - Dyspnoea [Unknown]
